FAERS Safety Report 6415337-4 (Version None)
Quarter: 2009Q4

REPORT INFORMATION
  Report Type: 
  Country: None (occurrence: None)
  Receive Date: 20091027
  Receipt Date: 20091020
  Transmission Date: 20100525
  Serious: Yes (Other)
  Sender: FDA-Public Use
  Company Number: PHHY2009ES45693

PATIENT
  Sex: Female

DRUGS (3)
  1. CERTICAN [Suspect]
     Indication: LUNG TRANSPLANT
  2. SIMULECT [Suspect]
     Indication: LUNG TRANSPLANT
  3. ANTI-CALCINEURINIC DRUG [Suspect]
     Indication: LUNG TRANSPLANT

REACTIONS (2)
  - HAEMOLYTIC URAEMIC SYNDROME [None]
  - NEUTROPENIA [None]
